FAERS Safety Report 18035373 (Version 10)
Quarter: 2021Q1

REPORT INFORMATION
  Report Type: Spontaneous
  Country: US (occurrence: US)
  Receive Date: 20200717
  Receipt Date: 20210312
  Transmission Date: 20210419
  Serious: Yes (Hospitalization, Other)
  Sender: FDA-Public Use
  Company Number: US-GLAXOSMITHKLINE-US2020AMR133948

PATIENT
  Age: 54 Year
  Sex: Female

DRUGS (7)
  1. ZEJULA [Suspect]
     Active Substance: NIRAPARIB
     Indication: OVARIAN CANCER
     Dosage: 200 MG, QD
     Route: 048
     Dates: start: 20200702
  2. ZEJULA [Suspect]
     Active Substance: NIRAPARIB
     Dosage: 200 MG, QD
     Route: 048
  3. ZEJULA [Suspect]
     Active Substance: NIRAPARIB
     Dosage: 200 MG, QD
  4. ZEJULA [Suspect]
     Active Substance: NIRAPARIB
     Dosage: 200 MG, QD
     Route: 048
  5. ZEJULA [Suspect]
     Active Substance: NIRAPARIB
     Dosage: 200 MG, QD
     Route: 048
  6. ZEJULA [Suspect]
     Active Substance: NIRAPARIB
     Dosage: 200 MG, QD
     Route: 048
  7. AVASTIN [Suspect]
     Active Substance: BEVACIZUMAB
     Indication: OVARIAN CANCER
     Dosage: UNK

REACTIONS (19)
  - Dural tear [Unknown]
  - Cerebrospinal fluid leakage [Unknown]
  - Pneumonia [Recovered/Resolved]
  - Decreased appetite [Unknown]
  - Headache [Unknown]
  - Asthma [Unknown]
  - Sinus disorder [Not Recovered/Not Resolved]
  - Paraesthesia [Not Recovered/Not Resolved]
  - Pyrexia [Not Recovered/Not Resolved]
  - Dyspnoea [Unknown]
  - Duodenogastric reflux [Unknown]
  - Productive cough [Unknown]
  - Neuropathy peripheral [Unknown]
  - Fatigue [Recovered/Resolved]
  - Fibrin D dimer increased [Unknown]
  - Sputum discoloured [Unknown]
  - Dehydration [Unknown]
  - Pain [Unknown]
  - Heart rate increased [Recovered/Resolved]

NARRATIVE: CASE EVENT DATE: 20201226
